FAERS Safety Report 9308965 (Version 1)
Quarter: 2013Q2

REPORT INFORMATION
  Report Type: Spontaneous
  Country: JP (occurrence: JP)
  Receive Date: 20130524
  Receipt Date: 20130524
  Transmission Date: 20140414
  Serious: Yes (Other)
  Sender: FDA-Public Use
  Company Number: JP-009507513-1305JPN013607

PATIENT
  Age: 27 Year
  Sex: Female

DRUGS (2)
  1. BETAMETHASONE SODIUM PHOSPHATE [Suspect]
     Indication: MATERNAL THERAPY TO ENHANCE FOETAL LUNG MATURITY
     Dosage: UNK
     Route: 030
  2. RITODRINE HYDROCHLORIDE [Suspect]
     Indication: THREATENED LABOUR
     Dosage: 50 MICROGRAM/MIN
     Route: 042

REACTIONS (3)
  - Pulmonary oedema [Recovering/Resolving]
  - Maternal exposure during pregnancy [Unknown]
  - Normal newborn [Unknown]
